FAERS Safety Report 9785278 (Version 2)
Quarter: 2014Q1

REPORT INFORMATION
  Report Type: Spontaneous
  Country: US (occurrence: None)
  Receive Date: 20131224
  Receipt Date: 20140204
  Transmission Date: 20141002
  Serious: Yes (Other)
  Sender: FDA-Public Use
  Company Number: 20130714

PATIENT
  Age: 37 Year
  Sex: Female

DRUGS (1)
  1. OLANZAPINE [Suspect]
     Indication: WEIGHT ABNORMAL

REACTIONS (1)
  - Acute hepatic failure [None]
